FAERS Safety Report 14066616 (Version 1)
Quarter: 2017Q4

REPORT INFORMATION
  Report Type: Spontaneous
  Country: US (occurrence: US)
  Receive Date: 20171009
  Receipt Date: 20171009
  Transmission Date: 20180321
  Serious: No
  Sender: FDA-Public Use
  Company Number: US-CELGENEUS-USA-20171001727

PATIENT
  Sex: Male

DRUGS (1)
  1. OTEZLA [Suspect]
     Active Substance: APREMILAST
     Indication: PSORIASIS
     Route: 048
     Dates: start: 20170318

REACTIONS (4)
  - Depressive symptom [Recovered/Resolved]
  - Weight decreased [Recovered/Resolved]
  - Gastrooesophageal reflux disease [Recovered/Resolved]
  - Gastritis erosive [Recovered/Resolved]

NARRATIVE: CASE EVENT DATE: 2017
